FAERS Safety Report 4967831-0 (Version None)
Quarter: 2006Q2

REPORT INFORMATION
  Report Type: 
  Country: None (occurrence: None)
  Receive Date: 20060410
  Receipt Date: 20051025
  Transmission Date: 20061013
  Serious: Yes (Hospitalization)
  Sender: FDA-Public Use
  Company Number: US-MERCK-0510USA09055

PATIENT
  Age: 64 Year
  Sex: Female
  Weight: 134 kg

DRUGS (9)
  1. VIOXX [Suspect]
     Indication: ARTHRITIS
     Route: 048
     Dates: start: 19990901, end: 20040105
  2. PREMARIN [Concomitant]
     Route: 065
  3. TUMS [Concomitant]
     Route: 065
  4. MECLIZINE [Concomitant]
     Route: 065
  5. DITROPAN XL [Concomitant]
     Indication: URINARY INCONTINENCE
     Route: 065
  6. THEOPHYLLINE [Concomitant]
     Route: 065
  7. PROVENTIL [Concomitant]
     Route: 055
  8. SINGULAIR [Concomitant]
     Route: 065
  9. PREMARIN [Concomitant]
     Route: 067

REACTIONS (20)
  - ARRHYTHMIA [None]
  - BONE CYST [None]
  - DEEP VEIN THROMBOSIS [None]
  - DIABETES MELLITUS [None]
  - DILATATION VENTRICULAR [None]
  - EXOSTOSIS [None]
  - GASTROOESOPHAGEAL REFLUX DISEASE [None]
  - HYPERTENSION [None]
  - HYPOKALAEMIA [None]
  - JUGULAR VEIN DISTENSION [None]
  - MENISCUS LESION [None]
  - MITRAL VALVE CALCIFICATION [None]
  - MITRAL VALVE INCOMPETENCE [None]
  - MYOCARDIAL INFARCTION [None]
  - OEDEMA PERIPHERAL [None]
  - PULMONARY EMBOLISM [None]
  - SINUS TACHYCARDIA [None]
  - SUPRAVENTRICULAR EXTRASYSTOLES [None]
  - TACHYPNOEA [None]
  - VENTRICULAR HYPERTROPHY [None]
